FAERS Safety Report 7893894-9 (Version None)
Quarter: 2011Q4

REPORT INFORMATION
  Report Type: 
  Country: None (occurrence: None)
  Receive Date: 20111104
  Receipt Date: 20111031
  Transmission Date: 20120403
  Serious: Yes (Hospitalization)
  Sender: FDA-Public Use
  Company Number: CA-ABBOTT-11P-028-0864337-00

PATIENT
  Sex: Female
  Weight: 90.8 kg

DRUGS (9)
  1. TRIFLUOPERAZINE HCL [Concomitant]
     Indication: PSYCHOTIC DISORDER
     Route: 048
     Dates: start: 20060101
  2. HUMIRA [Suspect]
     Indication: CROHN'S DISEASE
     Route: 058
     Dates: start: 20090612, end: 20111007
  3. HUMIRA [Suspect]
     Route: 058
     Dates: start: 20111028
  4. DIVALPROEX SODIUM [Concomitant]
     Indication: AFFECTIVE DISORDER
     Route: 048
     Dates: start: 20010101
  5. METHOPRAZINE [Concomitant]
     Indication: PSYCHOTIC DISORDER
     Route: 048
     Dates: start: 20060101
  6. TEMAZEPAM [Concomitant]
     Indication: INSOMNIA
     Route: 048
     Dates: start: 20070101
  7. RABEPRAZOLE EC [Concomitant]
     Indication: DYSPEPSIA
     Route: 058
     Dates: start: 19910101
  8. ZYBAN [Concomitant]
     Indication: SMOKING CESSATION THERAPY
     Route: 048
     Dates: start: 20111005, end: 20111010
  9. LOPERAMIDE HCL [Concomitant]
     Indication: DIARRHOEA
     Route: 048
     Dates: start: 20060101

REACTIONS (3)
  - ASTHENIA [None]
  - PYREXIA [None]
  - LOBAR PNEUMONIA [None]
